FAERS Safety Report 6093692-5 (Version None)
Quarter: 2009Q1

REPORT INFORMATION
  Report Type: 
  Country: None (occurrence: None)
  Receive Date: 20090223
  Receipt Date: 20090212
  Transmission Date: 20090719
  Serious: Yes (Other)
  Sender: FDA-Public Use
  Company Number: 2009-00434

PATIENT
  Age: 69 Year
  Sex: Female
  Weight: 87 kg

DRUGS (6)
  1. VELCADE [Suspect]
     Indication: MULTIPLE MYELOMA
     Dates: start: 20090106
  2. DEXAMETHASONE [Concomitant]
  3. CYCLOPHOSPHAMIDE [Concomitant]
  4. ORAMORPH SR [Concomitant]
  5. FENTANYL-100 [Concomitant]
  6. LEVOTHYROXINE SODIUM [Concomitant]

REACTIONS (9)
  - ABDOMINAL PAIN UPPER [None]
  - CHILLS [None]
  - DRUG WITHDRAWAL SYNDROME [None]
  - MUSCLE TWITCHING [None]
  - RASH ERYTHEMATOUS [None]
  - RASH PAPULAR [None]
  - RASH PRURITIC [None]
  - THERAPY REGIMEN CHANGED [None]
  - TREMOR [None]
